FAERS Safety Report 23556518 (Version 3)
Quarter: 2024Q2

REPORT INFORMATION
  Report Type: Spontaneous
  Country: US (occurrence: US)
  Receive Date: 20240223
  Receipt Date: 20240603
  Transmission Date: 20240717
  Serious: No
  Sender: FDA-Public Use
  Company Number: US-BRISTOL-MYERS SQUIBB COMPANY-2024-029476

PATIENT
  Age: 79 Year
  Sex: Male

DRUGS (1)
  1. INREBIC [Suspect]
     Active Substance: FEDRATINIB HYDROCHLORIDE
     Indication: Product used for unknown indication
     Dosage: DOSE: 100 MG;  FREQ: TAKE 4 CAPSULES DAILY; 400 MG A DAY
     Route: 048

REACTIONS (4)
  - Illness [Unknown]
  - Cough [Unknown]
  - Decreased appetite [Unknown]
  - Product dose omission issue [Unknown]
